FAERS Safety Report 21187036 (Version 6)
Quarter: 2022Q3

REPORT INFORMATION
  Report Type: Spontaneous
  Country: CN (occurrence: CN)
  Receive Date: 20220808
  Receipt Date: 20220826
  Transmission Date: 20221027
  Serious: Yes (Death, Hospitalization, Other)
  Sender: FDA-Public Use
  Company Number: CN-009507513-2208CHN002424

PATIENT
  Age: 60 Year
  Sex: Male

DRUGS (3)
  1. KEYTRUDA [Suspect]
     Active Substance: PEMBROLIZUMAB
     Dosage: 200 MG, Q3W
     Dates: start: 20220629, end: 20220802
  2. PACLITAXEL [Suspect]
     Active Substance: PACLITAXEL
     Dosage: UNK
  3. CARBOPLATIN [Suspect]
     Active Substance: CARBOPLATIN

REACTIONS (10)
  - Hepatic failure [Fatal]
  - Adverse reaction [Fatal]
  - Renal failure [Fatal]
  - Pneumonia [Fatal]
  - Myelosuppression [Unknown]
  - Septic shock [Unknown]
  - Respiratory failure [Unknown]
  - Cardiac failure [Unknown]
  - Pulmonary embolism [Unknown]
  - Sinus tachycardia [Unknown]

NARRATIVE: CASE EVENT DATE: 20220101
